FAERS Safety Report 6647622-5 (Version None)
Quarter: 2010Q1

REPORT INFORMATION
  Report Type: 
  Country: None (occurrence: None)
  Receive Date: 20100323
  Receipt Date: 20100323
  Transmission Date: 20100710
  Serious: Yes (Other)
  Sender: FDA-Public Use
  Company Number: None

PATIENT
  Age: 75 Year
  Sex: Female
  Weight: 74.8435 kg

DRUGS (1)
  1. ACTOS [Suspect]
     Indication: DIABETES MELLITUS
     Dosage: 15 MG ONCE DAILY
     Dates: start: 20050101, end: 20091209

REACTIONS (3)
  - DYSPNOEA [None]
  - OEDEMA PERIPHERAL [None]
  - WEIGHT DECREASED [None]
